FAERS Safety Report 4582685-2 (Version None)
Quarter: 2005Q1

REPORT INFORMATION
  Report Type: 
  Country: None (occurrence: None)
  Receive Date: 20050215
  Receipt Date: 20030917
  Transmission Date: 20050727
  Serious: Yes (Hospitalization, Other)
  Sender: FDA-Public Use
  Company Number: US-GLAXOSMITHKLINE-A0426253A

PATIENT
  Age: 46 Year
  Sex: Female
  Weight: 80.9 kg

DRUGS (1)
  1. COMMIT [Suspect]
     Dosage: 4MG TWICE PER DAY
     Route: 002
     Dates: start: 20030501, end: 20030601

REACTIONS (26)
  - CANDIDIASIS [None]
  - CHOKING SENSATION [None]
  - COUGH [None]
  - DIVERTICULUM GASTRIC [None]
  - DRY THROAT [None]
  - DYSPHAGIA [None]
  - DYSPHONIA [None]
  - DYSPNOEA [None]
  - HAEMORRHAGE [None]
  - HEART RATE INCREASED [None]
  - HYPERTENSION [None]
  - HYPOGEUSIA [None]
  - INCREASED VISCOSITY OF BRONCHIAL SECRETION [None]
  - INSOMNIA [None]
  - LARYNGEAL OEDEMA [None]
  - LARYNGITIS [None]
  - LARYNX IRRITATION [None]
  - OESOPHAGEAL CANDIDIASIS [None]
  - ORAL MUCOSAL DISCOLOURATION [None]
  - OROPHARYNGEAL SWELLING [None]
  - PHARYNGEAL ERYTHEMA [None]
  - PHARYNGOLARYNGEAL PAIN [None]
  - SENSATION OF FOREIGN BODY [None]
  - THROAT IRRITATION [None]
  - THROAT TIGHTNESS [None]
  - WEIGHT INCREASED [None]
